FAERS Safety Report 17607618 (Version 1)
Quarter: 2020Q2

REPORT INFORMATION
  Report Type: Other
  Country: FR (occurrence: FR)
  Receive Date: 20200401
  Receipt Date: 20200401
  Transmission Date: 20200713
  Serious: Yes (Hospitalization)
  Sender: FDA-Public Use
  Company Number: FR-CELLTRION INC.-2020FR020906

PATIENT

DRUGS (2)
  1. TRUXIMA [Suspect]
     Active Substance: RITUXIMAB-ABBS
     Indication: AUTOIMMUNE HAEMOLYTIC ANAEMIA
     Dosage: 650 MG, 1 TOTAL
     Route: 041
     Dates: start: 20200203, end: 20200203
  2. PREDNISONE. [Interacting]
     Active Substance: PREDNISONE
     Indication: AUTOIMMUNE HAEMOLYTIC ANAEMIA
     Dosage: UNK
     Route: 048
     Dates: start: 20191112

REACTIONS (3)
  - Bacteraemia [Recovered/Resolved]
  - Cholangitis [Recovering/Resolving]
  - Product use in unapproved indication [Unknown]

NARRATIVE: CASE EVENT DATE: 20200203
